FAERS Safety Report 5726752-6 (Version None)
Quarter: 2008Q2

REPORT INFORMATION
  Report Type: 
  Country: None (occurrence: None)
  Receive Date: 20080502
  Receipt Date: 20080423
  Transmission Date: 20081010
  Serious: Yes (Death, Hospitalization, Other)
  Sender: FDA-Public Use
  Company Number: JP-ABBOTT-08P-087-0449841-00

PATIENT
  Age: 68 Year
  Sex: Male

DRUGS (8)
  1. CYCLOSPORINE [Suspect]
     Indication: INTERSTITIAL LUNG DISEASE
     Dosage: DAILY
  2. CYCLOSPORINE [Suspect]
     Dosage: DAILY
  3. CYCLOSPORINE [Suspect]
     Dosage: DAILY
  4. PREDNISOLONE ACETATE [Concomitant]
     Indication: INTERSTITIAL LUNG DISEASE
     Dosage: DAILY
  5. PREDNISOLONE ACETATE [Concomitant]
     Dosage: DAILY
  6. METHYLPREDNISOLONE [Concomitant]
     Indication: INTERSTITIAL LUNG DISEASE
     Dosage: DAILY
  7. URSODIOL [Concomitant]
     Indication: INTERSTITIAL LUNG DISEASE
     Dosage: DAILY
  8. STEROID PULSE THERAPY [Concomitant]
     Indication: INTERSTITIAL LUNG DISEASE
     Dosage: NOT REPORTED

REACTIONS (1)
  - HEPATOCELLULAR INJURY [None]
